FAERS Safety Report 8480820-7 (Version None)
Quarter: 2012Q3

REPORT INFORMATION
  Report Type: 
  Country: None (occurrence: None)
  Receive Date: 20120702
  Receipt Date: 20120620
  Transmission Date: 20120928
  Serious: Yes (Death, Hospitalization, Other)
  Sender: FDA-Public Use
  Company Number: NL-ACCORD-013927

PATIENT
  Sex: Male

DRUGS (3)
  1. ETOPOSIDE [Suspect]
     Indication: NON-SMALL CELL LUNG CANCER STAGE IIIA
     Dosage: ON DAYS 21-23 AND 42-44.
  2. CISPLATIN [Suspect]
     Indication: NON-SMALL CELL LUNG CANCER STAGE IIIA
     Dosage: 80 MG/M2 ON DAY 1 FOLLOWED BY 80 MG/M2 ON DAYS 21 AND 42.
  3. GEMCITABINE [Suspect]
     Indication: NON-SMALL CELL LUNG CANCER STAGE IIIA
     Dosage: ON DAYS 1 AND 8.

REACTIONS (3)
  - OFF LABEL USE [None]
  - LEUKOPENIA [None]
  - ABSCESS [None]
